FAERS Safety Report 8090214-4 (Version None)
Quarter: 2012Q1

REPORT INFORMATION
  Report Type: 
  Country: None (occurrence: None)
  Receive Date: 20120129
  Receipt Date: 20111107
  Transmission Date: 20120608
  Serious: No
  Sender: FDA-Public Use
  Company Number: US-ABBOTT-11P-163-0872255-00

PATIENT
  Sex: Female
  Weight: 74.91 kg

DRUGS (12)
  1. PREDNISONE TAB [Concomitant]
     Indication: RHEUMATOID ARTHRITIS
  2. OMEPRAZOLE [Concomitant]
     Indication: GASTROOESOPHAGEAL REFLUX DISEASE
  3. TOPOROL [Concomitant]
     Indication: PALPITATIONS
  4. HYDROCODONE BITARTRATE [Concomitant]
     Indication: PAIN
  5. LEVOTHYROXINE SODIUM [Concomitant]
     Indication: HYPOTHYROIDISM
  6. HUMIRA [Suspect]
     Indication: PSORIATIC ARTHROPATHY
     Dates: start: 20100101, end: 20110901
  7. PLAVIX [Concomitant]
     Indication: THROMBOSIS
  8. TACROLIMUS [Concomitant]
     Indication: PRODUCT USED FOR UNKNOWN INDICATION
  9. HYDROXYCHLOROQUINE SULFATE [Concomitant]
     Indication: SYSTEMIC LUPUS ERYTHEMATOSUS
  10. HYDROCHOLORTHIAZIDE [Concomitant]
     Indication: HYPERTENSION
  11. HUMIRA [Suspect]
     Indication: RHEUMATOID ARTHRITIS
     Dates: start: 20080101, end: 20100101
  12. PRIMIDONE [Concomitant]
     Indication: TREMOR

REACTIONS (1)
  - ARTHRITIS [None]
